FAERS Safety Report 7373469-0 (Version None)
Quarter: 2011Q1

REPORT INFORMATION
  Report Type: 
  Country: None (occurrence: None)
  Receive Date: 20110325
  Receipt Date: 20110317
  Transmission Date: 20110831
  Serious: No
  Sender: FDA-Public Use
  Company Number: US-BIOGENIDEC-2010BI042291

PATIENT
  Sex: Male

DRUGS (1)
  1. TYSABRI [Suspect]
     Indication: MULTIPLE SCLEROSIS
     Route: 042
     Dates: start: 20090427

REACTIONS (7)
  - FALL [None]
  - ARTHRALGIA [None]
  - MUSCLE SPASMS [None]
  - OVERDOSE [None]
  - TREMOR [None]
  - BLOOD PRESSURE DECREASED [None]
  - HEAD TITUBATION [None]
